FAERS Safety Report 15799496 (Version 3)
Quarter: 2020Q4

REPORT INFORMATION
  Report Type: Report from Study
  Country: IN (occurrence: IN)
  Receive Date: 20190108
  Receipt Date: 20201020
  Transmission Date: 20210113
  Serious: Yes (Other)
  Sender: FDA-Public Use
  Company Number: IN-B.I. PHARMACEUTICALS,INC./RIDGEFIELD-2019-BI-000627

PATIENT
  Age: 43 Year
  Sex: Female
  Weight: 42 kg

DRUGS (6)
  1. NINTEDANIB [Suspect]
     Active Substance: NINTEDANIB
     Indication: SYSTEMIC SCLEROSIS PULMONARY
     Route: 048
     Dates: start: 20181126, end: 20181210
  2. ESOMAC L [Concomitant]
     Indication: PROPHYLAXIS
     Route: 048
     Dates: start: 20181119
  3. CABERLIN [Concomitant]
     Indication: GALACTORRHOEA
     Route: 048
     Dates: start: 20181009
  4. CABERLIN [Concomitant]
     Route: 048
     Dates: start: 20181009
  5. NICARDIA [Concomitant]
     Active Substance: NIFEDIPINE
     Indication: SYSTEMIC SCLERODERMA
     Route: 048
     Dates: start: 20181119
  6. TRIQUILAR [Concomitant]
     Active Substance: DROSPIRENONE\ETHINYL ESTRADIOL
     Indication: PROPHYLAXIS
     Route: 048
     Dates: start: 20160907

REACTIONS (2)
  - Hepatic enzyme increased [Recovered/Resolved]
  - Liver injury [Recovered/Resolved]

NARRATIVE: CASE EVENT DATE: 20181210
